FAERS Safety Report 5991863-7 (Version None)
Quarter: 2008Q4

REPORT INFORMATION
  Report Type: 
  Country: None (occurrence: None)
  Receive Date: 20081202
  Receipt Date: 20080429
  Transmission Date: 20090506
  Serious: Yes (Other)
  Sender: FDA-Public Use
  Company Number: WAES 0309USA00522

PATIENT
  Age: 55 Year
  Sex: Female

DRUGS (3)
  1. FOSAMAX [Suspect]
     Indication: OSTEOPOROSIS
     Dosage: 70 MG/WKY/PO
     Route: 048
     Dates: start: 20021001, end: 20080101
  2. CALCIUM CITRATE (+) CHOLECALICFE [Concomitant]
  3. PHENYTOIN SODIUM [Concomitant]

REACTIONS (6)
  - BLOOD CHOLESTEROL INCREASED [None]
  - BONE SWELLING [None]
  - FRACTURE [None]
  - INTERVERTEBRAL DISC PROTRUSION [None]
  - OSTEONECROSIS [None]
  - PAIN [None]
